FAERS Safety Report 6832067-5 (Version None)
Quarter: 2010Q3

REPORT INFORMATION
  Report Type: 
  Country: None (occurrence: None)
  Receive Date: 20100712
  Receipt Date: 20100630
  Transmission Date: 20110219
  Serious: Yes (Hospitalization)
  Sender: FDA-Public Use
  Company Number: US-ROCHE-713536

PATIENT
  Sex: Female
  Weight: 77.1 kg

DRUGS (10)
  1. BEVACIZUMAB [Suspect]
     Indication: GLIOBLASTOMA MULTIFORME
     Dosage: EVERY 14 DAYS (DAY 1 AND 5/28 DAY CYCLE
     Route: 042
  2. BEVACIZUMAB [Suspect]
     Route: 042
     Dates: start: 20100316, end: 20100608
  3. TEMOZOLOMIDE [Suspect]
     Indication: GLIOBLASTOMA MULTIFORME
     Route: 048
     Dates: start: 20090325
  4. TEMOZOLOMIDE [Suspect]
     Route: 048
     Dates: start: 20090724
  5. TEMOZOLOMIDE [Suspect]
     Dosage: DAYS 1-5 + 15-19/28 DAY CYCLE
     Route: 048
  6. TEMOZOLOMIDE [Suspect]
     Dosage: EVERY 5 DAYS X EVERY TWO WEEKS
     Route: 048
     Dates: start: 20100316, end: 20100608
  7. KEPPRA [Concomitant]
     Dosage: INCREASED FORM 750 MG TWICE DAILY TO 1000 MG TWICE DAILY
     Dates: start: 20100628
  8. DECADRON [Concomitant]
     Dates: start: 20100525
  9. TYLENOL (CAPLET) [Concomitant]
  10. ONDANSETRON [Concomitant]

REACTIONS (3)
  - LETHARGY [None]
  - MENTAL STATUS CHANGES [None]
  - URINARY TRACT INFECTION [None]
